FAERS Safety Report 18119286 (Version 1)
Quarter: 2020Q3

REPORT INFORMATION
  Report Type: Spontaneous
  Country: US (occurrence: US)
  Receive Date: 20200806
  Receipt Date: 20200806
  Transmission Date: 20201103
  Serious: Yes (Other)
  Sender: FDA-Public Use
  Company Number: None

PATIENT
  Age: 62 Year
  Sex: Female
  Weight: 61.65 kg

DRUGS (1)
  1. ENHERTU [Suspect]
     Active Substance: FAM-TRASTUZUMAB DERUXTECAN-NXKI
     Indication: BREAST CANCER METASTATIC

REACTIONS (6)
  - Back pain [None]
  - Gastric dilatation [None]
  - Muscle spasms [None]
  - Dyspnoea [None]
  - Diaphragmalgia [None]
  - Diaphragmatic spasm [None]

NARRATIVE: CASE EVENT DATE: 20200805
